FAERS Safety Report 9399799 (Version 3)
Quarter: 2013Q3

REPORT INFORMATION
  Report Type: Spontaneous
  Country: US (occurrence: None)
  Receive Date: 20130710
  Receipt Date: 20130903
  Transmission Date: 20140515
  Serious: Yes (Other)
  Sender: FDA-Public Use
  Company Number: 302900130

PATIENT
  Age: 25 Year
  Sex: Female

DRUGS (1)
  1. THERATEARS LUBRICANT EYE DROPS [Suspect]
     Indication: FOREIGN BODY IN EYE
     Route: 061
     Dates: start: 20130607, end: 20130608

REACTIONS (5)
  - Eye swelling [None]
  - Dark circles under eyes [None]
  - Discomfort [None]
  - Fluid retention [None]
  - Conjunctivitis allergic [None]
